FAERS Safety Report 6668882-0 (Version None)
Quarter: 2010Q2

REPORT INFORMATION
  Report Type: 
  Country: None (occurrence: None)
  Receive Date: 20100406
  Receipt Date: 20100331
  Transmission Date: 20101027
  Serious: Yes (Other)
  Sender: FDA-Public Use
  Company Number: CA-ALLERGAN-1004269US

PATIENT
  Age: 37 Year
  Sex: Female

DRUGS (3)
  1. BOTOX COSMETIC [Suspect]
     Indication: SKIN WRINKLING
     Dosage: 70 UNITS, SINGLE
     Route: 030
     Dates: start: 20100305, end: 20100305
  2. DAILY VITAMINS [Concomitant]
  3. FISH OIL [Concomitant]

REACTIONS (9)
  - BOTULISM [None]
  - DEAFNESS BILATERAL [None]
  - DRUG INEFFECTIVE [None]
  - DRY EYE [None]
  - DRY MOUTH [None]
  - DYSPNOEA [None]
  - HEAD DISCOMFORT [None]
  - SPEECH DISORDER [None]
  - SWOLLEN TONGUE [None]
